FAERS Safety Report 11073668 (Version 1)
Quarter: 2015Q2

REPORT INFORMATION
  Report Type: Spontaneous
  Country: SE (occurrence: SE)
  Receive Date: 20150428
  Receipt Date: 20150428
  Transmission Date: 20150821
  Serious: Yes (Disabling)
  Sender: FDA-Public Use
  Company Number: PHHY2015SE048000

PATIENT
  Age: 72 Year
  Sex: Male

DRUGS (2)
  1. OTRIVIN [Suspect]
     Active Substance: XYLOMETAZOLINE
     Indication: NASAL CONGESTION
     Dosage: UNK
     Route: 065
     Dates: start: 20140301, end: 20140307
  2. OTRIVIN [Suspect]
     Active Substance: XYLOMETAZOLINE
     Indication: NASOPHARYNGITIS

REACTIONS (1)
  - Anosmia [Not Recovered/Not Resolved]

NARRATIVE: CASE EVENT DATE: 201403
